FAERS Safety Report 23271218 (Version 1)
Quarter: 2023Q4

REPORT INFORMATION
  Report Type: Spontaneous
  Country: GB (occurrence: GB)
  Receive Date: 20231207
  Receipt Date: 20231207
  Transmission Date: 20240109
  Serious: Yes (Life-Threatening)
  Sender: FDA-Public Use
  Company Number: None

PATIENT
  Age: 89 Year
  Sex: Female

DRUGS (17)
  1. EDOXABAN [Suspect]
     Active Substance: EDOXABAN
     Indication: Product used for unknown indication
     Dosage: 30 MG, QD (ONE TO BE TAKEN EACH DAY)
     Route: 065
  2. CALCIUM CARBONATE [Concomitant]
     Active Substance: CALCIUM CARBONATE
     Indication: Product used for unknown indication
     Dosage: 1.5 G, BID (1.5G CHEWABLE TABLETS SUGAR FREE, TUTTI FRUTTI TAKE ONE TWICE DAILY)
     Route: 065
  3. FLUTICASONE FUROATE\SALMETEROL XINAFOATE [Concomitant]
     Active Substance: FLUTICASONE FUROATE\SALMETEROL XINAFOATE
     Indication: Product used for unknown indication
     Dosage: 2 DF, BID (PUFF,25MICROGRAMS/DOSE / 250MICROGRAMS/DOSE INHALER, TWO PUFFS TO BE INHALED TWICE A DAY
     Route: 055
  4. VENTOLIN [Concomitant]
     Active Substance: ALBUTEROL SULFATE
     Indication: Product used for unknown indication
     Dosage: 2 DF, AS NEEDED (100MICROGRAMS/DOSE EVOHALER INHALE 2 DOSES AS NEEDED)
     Route: 055
  5. BALNEUM PLUS [LAUROMACROGOL 400;UREA] [Concomitant]
     Indication: Product used for unknown indication
     Dosage: UNK (APPLY FREQUENTLY AS A MOISTURISER)
     Route: 065
  6. COTRIMOXAZOLE [Concomitant]
     Active Substance: SULFAMETHOXAZOLE\TRIMETHOPRIM
     Indication: Product used for unknown indication
     Dosage: 2 DF, QD (160MG/800MG TABLETS, 20 DAYS)
     Route: 065
  7. HYDROXOCOBALAMIN [Concomitant]
     Active Substance: HYDROXOCOBALAMIN
     Indication: Product used for unknown indication
     Dosage: 1 DF, ONCE EVERY 12 WEEK (1MG/1ML SOLUTION FOR INJECTION AMPOULES 1 TO BE GIVEN BY NURSE, LAST RECEI
     Route: 065
  8. METRONIDAZOLE [Concomitant]
     Active Substance: METRONIDAZOLE
     Indication: Product used for unknown indication
     Dosage: 400 MG, TID (FOR 20 DAYS)
     Route: 065
  9. IBUPROFEN [Concomitant]
     Active Substance: IBUPROFEN
     Indication: Product used for unknown indication
     Dosage: UNK
     Route: 065
  10. LEVOTHYROXINE [Concomitant]
     Active Substance: LEVOTHYROXINE
     Indication: Product used for unknown indication
     Dosage: 3 DF, QD (TO BE TAKEN EACH MORNING)
     Route: 065
  11. NIZATIDINE [Concomitant]
     Active Substance: NIZATIDINE
     Indication: Product used for unknown indication
     Dosage: UNK
     Route: 065
  12. LACTULOSE [Concomitant]
     Active Substance: LACTULOSE
     Indication: Constipation
     Dosage: 15 ML, BID (3.1-3.7G/5ML ORAL SOLUTION, THREE 5 ML SPOONFULS TO BE TAKEN TWICE A DAY TO PREVENT CONS
     Route: 065
  13. ATORVASTATIN [Concomitant]
     Active Substance: ATORVASTATIN
     Indication: Product used for unknown indication
     Dosage: 20 MG, QD (ONE TO BE TAKEN EACH DAY)
     Route: 065
  14. AMITRIPTYLINE [Concomitant]
     Active Substance: AMITRIPTYLINE
     Indication: Product used for unknown indication
     Dosage: 0.5 DF, QD (10 MG TABLETS, HALF A TABLET TO BE TAKEN AT NIGHTTIME)
     Route: 065
  15. AMLODIPINE [Concomitant]
     Active Substance: AMLODIPINE BESYLATE
     Indication: Product used for unknown indication
     Dosage: 5 MG, QD (ONE TO BE TAKEN EACH DAY)
     Route: 065
  16. FERROUS SULFATE [Concomitant]
     Active Substance: FERROUS SULFATE
     Indication: Product used for unknown indication
     Dosage: 200 MG, QD
     Route: 065
  17. METRONIDAZOLE [Concomitant]
     Active Substance: METRONIDAZOLE
     Indication: Product used for unknown indication
     Dosage: 10 ML, TID (200MG/5ML SUSPENSION, FOR 20 DAYS)
     Route: 065

REACTIONS (2)
  - Cerebrovascular accident [Unknown]
  - Treatment failure [Unknown]
